FAERS Safety Report 16639224 (Version 6)
Quarter: 2023Q4

REPORT INFORMATION
  Report Type: Report from Study
  Country: JP (occurrence: JP)
  Receive Date: 20190726
  Receipt Date: 20231203
  Transmission Date: 20240109
  Serious: Yes (Hospitalization, Other)
  Sender: FDA-Public Use
  Company Number: PHJP2019JP009673

PATIENT
  Age: 54 Year
  Sex: Male
  Weight: 54.2 kg

DRUGS (22)
  1. ILARIS [Suspect]
     Active Substance: CANAKINUMAB
     Indication: Familial mediterranean fever
     Dosage: 150 MG
     Route: 058
     Dates: start: 201905
  2. ILARIS [Suspect]
     Active Substance: CANAKINUMAB
     Indication: VEXAS syndrome
     Dosage: 150 MG
     Route: 058
     Dates: start: 20190611
  3. ILARIS [Suspect]
     Active Substance: CANAKINUMAB
     Dosage: 150 MG
     Route: 058
     Dates: start: 20190709, end: 20190709
  4. PREDONINE [Suspect]
     Active Substance: PREDNISOLONE
     Indication: Product used for unknown indication
     Dosage: UNK
     Route: 048
  5. PREDONINE [Suspect]
     Active Substance: PREDNISOLONE
     Dosage: 10 MG
     Route: 048
  6. PREDONINE [Suspect]
     Active Substance: PREDNISOLONE
     Dosage: 7.5 MG
     Route: 048
     Dates: start: 201807
  7. PREDONINE [Suspect]
     Active Substance: PREDNISOLONE
     Dosage: 5 MG
     Route: 048
     Dates: start: 201808
  8. PREDONINE [Suspect]
     Active Substance: PREDNISOLONE
     Dosage: 2.5 MG
     Route: 048
     Dates: start: 201808
  9. PREDONINE [Suspect]
     Active Substance: PREDNISOLONE
     Dosage: 60 MG
     Route: 048
  10. PREDONINE [Suspect]
     Active Substance: PREDNISOLONE
     Dosage: 2 MG
     Route: 048
     Dates: start: 201903
  11. PREDONINE [Suspect]
     Active Substance: PREDNISOLONE
     Dosage: 2 MG, ONCE DAILY (IN THE MORNING)
     Route: 048
     Dates: start: 20190715
  12. PREDONINE [Suspect]
     Active Substance: PREDNISOLONE
     Dosage: 30 MG
     Route: 048
     Dates: start: 202004
  13. PREDONINE [Suspect]
     Active Substance: PREDNISOLONE
     Dosage: 25 MG
     Route: 048
     Dates: start: 202004
  14. PREDONINE [Suspect]
     Active Substance: PREDNISOLONE
     Dosage: 20 MG
     Route: 048
     Dates: start: 202008
  15. VONOPRAZAN FUMARATE [Concomitant]
     Active Substance: VONOPRAZAN FUMARATE
     Indication: Prophylaxis
     Dosage: 10 MG
     Route: 048
  16. BONALON [Concomitant]
     Active Substance: ALENDRONATE SODIUM
     Indication: Prophylaxis
     Dosage: 35 MG
     Route: 048
  17. SULFAMETHOXAZOLE\TRIMETHOPRIM [Concomitant]
     Active Substance: SULFAMETHOXAZOLE\TRIMETHOPRIM
     Indication: Prophylaxis
     Dosage: UNK
     Route: 048
  18. HUMAN RED BLOOD CELL [Concomitant]
     Active Substance: HUMAN RED BLOOD CELL
     Indication: Product used for unknown indication
     Dosage: 2 IU
     Route: 065
  19. ETANERCEPT [Concomitant]
     Active Substance: ETANERCEPT
     Indication: Product used for unknown indication
     Dosage: 25 MG/W
     Route: 058
     Dates: start: 201810
  20. ETANERCEPT [Concomitant]
     Active Substance: ETANERCEPT
     Dosage: 25 MG, BID
     Route: 058
     Dates: start: 201901
  21. METHYLPREDNISOLONE [Concomitant]
     Active Substance: METHYLPREDNISOLONE
     Indication: Idiopathic orbital inflammation
     Dosage: 125 MG
     Route: 065
  22. METHYLPREDNISOLONE [Concomitant]
     Active Substance: METHYLPREDNISOLONE
     Indication: Giant cell arteritis
     Dosage: 500 MG
     Route: 065

REACTIONS (13)
  - Pneumonia [Recovering/Resolving]
  - Pyrexia [Unknown]
  - Lung opacity [Unknown]
  - Dyspnoea [Unknown]
  - Malaise [Unknown]
  - Enterocolitis [Recovered/Resolved]
  - Gastrointestinal oedema [Unknown]
  - Splenomegaly [Recovered/Resolved]
  - Pleurisy [Recovered/Resolved]
  - Pleural effusion [Unknown]
  - White blood cell count decreased [Unknown]
  - Rash [Unknown]
  - Product use in unapproved indication [Unknown]

NARRATIVE: CASE EVENT DATE: 20190712
